FAERS Safety Report 24381884 (Version 3)
Quarter: 2024Q4

REPORT INFORMATION
  Report Type: Spontaneous
  Country: US (occurrence: US)
  Receive Date: 20241001
  Receipt Date: 20241220
  Transmission Date: 20250114
  Serious: Yes (Hospitalization)
  Sender: UCB
  Company Number: US-UCBSA-2024048954

PATIENT
  Sex: Female

DRUGS (6)
  1. RYSTIGGO [Suspect]
     Active Substance: ROZANOLIXIZUMAB-NOLI
     Indication: Myasthenia gravis
     Dosage: 840 MILLIGRAM, WEEKLY (QW)
     Route: 058
     Dates: start: 20240827
  2. RYSTIGGO [Suspect]
     Active Substance: ROZANOLIXIZUMAB-NOLI
     Dosage: 840 MILLIGRAM, WEEKLY (QW)
     Route: 058
     Dates: start: 20240913
  3. RYSTIGGO [Suspect]
     Active Substance: ROZANOLIXIZUMAB-NOLI
     Dosage: 840 MILLIGRAM, WEEKLY (QW)
     Route: 058
     Dates: start: 20240919
  4. RYSTIGGO [Suspect]
     Active Substance: ROZANOLIXIZUMAB-NOLI
     Dosage: 840 MILLIGRAM, WEEKLY (QW)
     Route: 058
     Dates: start: 20240926
  5. RYSTIGGO [Suspect]
     Active Substance: ROZANOLIXIZUMAB-NOLI
     Dosage: 840 MILLIGRAM, WEEKLY (QW) (THERAPY INTERRUPTED)
     Route: 058
     Dates: start: 20241002
  6. EPINEPHRINE [Concomitant]
     Active Substance: EPINEPHRINE
     Indication: Product used for unknown indication

REACTIONS (3)
  - Hospitalisation [Unknown]
  - Infection [Recovered/Resolved]
  - Product dose omission issue [Unknown]

NARRATIVE: CASE EVENT DATE: 20240101
